FAERS Safety Report 22780834 (Version 3)
Quarter: 2023Q4

REPORT INFORMATION
  Report Type: Spontaneous
  Country: PT (occurrence: PT)
  Receive Date: 20230803
  Receipt Date: 20231005
  Transmission Date: 20240110
  Serious: Yes (Hospitalization, Other)
  Sender: FDA-Public Use
  Company Number: PT-AUROBINDO-AUR-APL-2023-041446

PATIENT
  Age: 43 Year
  Sex: Female

DRUGS (12)
  1. AMOXICILLIN\CLAVULANIC ACID [Suspect]
     Active Substance: AMOXICILLIN\CLAVULANIC ACID
     Indication: Product used for unknown indication
     Dosage: UNK
     Route: 065
  2. AZATHIOPRINE [Suspect]
     Active Substance: AZATHIOPRINE
     Indication: Crohn^s disease
     Dosage: UNK
     Route: 065
  3. AZATHIOPRINE [Suspect]
     Active Substance: AZATHIOPRINE
     Indication: Superinfection fungal
  4. AZATHIOPRINE [Suspect]
     Active Substance: AZATHIOPRINE
     Indication: Superinfection bacterial
  5. VANCOMYCIN [Concomitant]
     Active Substance: VANCOMYCIN
     Indication: Superinfection bacterial
     Dosage: UNK
     Route: 065
  6. VANCOMYCIN [Concomitant]
     Active Substance: VANCOMYCIN
     Indication: Superinfection fungal
  7. MEROPENEM [Concomitant]
     Active Substance: MEROPENEM
     Indication: Superinfection bacterial
     Dosage: UNK
     Route: 065
  8. MEROPENEM [Concomitant]
     Active Substance: MEROPENEM
     Indication: Superinfection fungal
  9. ANIDULAFUNGIN [Concomitant]
     Active Substance: ANIDULAFUNGIN
     Indication: Superinfection bacterial
     Dosage: UNK
     Route: 065
  10. ANIDULAFUNGIN [Concomitant]
     Active Substance: ANIDULAFUNGIN
     Indication: Superinfection fungal
  11. GANCICLOVIR [Concomitant]
     Active Substance: GANCICLOVIR
     Indication: Fungal infection
     Dosage: UNK
     Route: 065
  12. GANCICLOVIR [Concomitant]
     Active Substance: GANCICLOVIR
     Indication: Bacterial infection

REACTIONS (6)
  - Cholestasis [Unknown]
  - Hepatic cytolysis [Unknown]
  - Pancytopenia [Unknown]
  - Drug eruption [Unknown]
  - Rash [Unknown]
  - Rash erythematous [Unknown]
